FAERS Safety Report 8245299-9 (Version None)
Quarter: 2012Q1

REPORT INFORMATION
  Report Type: 
  Country: None (occurrence: None)
  Receive Date: 20120329
  Receipt Date: 20120316
  Transmission Date: 20120608
  Serious: No
  Sender: FDA-Public Use
  Company Number: US-ENDO PHARMACEUTICALS INC.-ENDN20120002

PATIENT
  Sex: Male

DRUGS (1)
  1. ENDODAN [Suspect]
     Indication: PAIN
     Dosage: UNK
     Route: 048

REACTIONS (4)
  - HEADACHE [None]
  - INSOMNIA [None]
  - CONFUSIONAL STATE [None]
  - DRUG INEFFECTIVE [None]
